FAERS Safety Report 10157279 (Version 1)
Quarter: 2014Q2

REPORT INFORMATION
  Report Type: Spontaneous
  Country: US (occurrence: US)
  Receive Date: 20140507
  Receipt Date: 20140507
  Transmission Date: 20141212
  Serious: Yes (Other)
  Sender: FDA-Public Use
  Company Number: US-ASTRAZENECA-2014SE29722

PATIENT
  Age: 76 Year
  Sex: Female

DRUGS (3)
  1. BRILINTA [Suspect]
     Indication: THROMBOSIS PROPHYLAXIS
     Route: 048
     Dates: start: 201401
  2. ASPIRIN [Suspect]
     Route: 065
  3. XARELTO [Suspect]
     Route: 065

REACTIONS (4)
  - Hypotension [Unknown]
  - Haemoglobin decreased [Recovering/Resolving]
  - Gastrointestinal haemorrhage [Unknown]
  - Abdominal pain [Unknown]
